FAERS Safety Report 23033972 (Version 1)
Quarter: 2023Q4

REPORT INFORMATION
  Report Type: Spontaneous
  Country: FR (occurrence: FR)
  Receive Date: 20231005
  Receipt Date: 20231005
  Transmission Date: 20240109
  Serious: Yes (Death)
  Sender: FDA-Public Use
  Company Number: None

PATIENT
  Age: 63 Year
  Sex: Male
  Weight: 52 kg

DRUGS (7)
  1. ETANERCEPT [Suspect]
     Active Substance: ETANERCEPT
     Indication: Transplant rejection
     Dosage: 2X/SEM
     Route: 058
     Dates: start: 20230626
  2. METHYLPREDNISOLONE SODIUM SUCCINATE [Suspect]
     Active Substance: METHYLPREDNISOLONE SODIUM SUCCINATE
     Indication: Transplant rejection
     Dosage: PAR J
     Route: 042
     Dates: start: 20230614
  3. RITUXIMAB [Suspect]
     Active Substance: RITUXIMAB
     Indication: Transplant rejection
     Route: 042
     Dates: start: 20230623, end: 20230623
  4. NEORAL [Suspect]
     Active Substance: CYCLOSPORINE
     Indication: Prophylaxis
     Dosage: UNKNOWN
     Route: 048
     Dates: start: 20230505
  5. CELLCEPT [Suspect]
     Active Substance: MYCOPHENOLATE MOFETIL
     Indication: Prophylaxis
     Dosage: 2X/J
     Route: 048
     Dates: start: 20230505, end: 20230616
  6. RUXOLITINIB [Suspect]
     Active Substance: RUXOLITINIB
     Indication: Transplant rejection
     Dosage: 2X/J
     Route: 048
     Dates: start: 20230619
  7. METHOTREXATE [Suspect]
     Active Substance: METHOTREXATE
     Indication: Transplant rejection
     Dosage: 1/SEM
     Route: 042
     Dates: start: 20230629

REACTIONS (2)
  - Septic shock [Fatal]
  - Product use in unapproved indication [Unknown]

NARRATIVE: CASE EVENT DATE: 20230712
